FAERS Safety Report 12741872 (Version 1)
Quarter: 2016Q3

REPORT INFORMATION
  Report Type: Spontaneous
  Country: CN (occurrence: CN)
  Receive Date: 20160914
  Receipt Date: 20160914
  Transmission Date: 20161109
  Serious: Yes (Life-Threatening)
  Sender: FDA-Public Use
  Company Number: CN-ROCHE-1829971

PATIENT
  Age: 2 Year
  Sex: Male
  Weight: 12 kg

DRUGS (6)
  1. SODIUM CHLORIDE. [Concomitant]
     Active Substance: SODIUM CHLORIDE
     Dosage: AS SOLVENT
     Route: 041
     Dates: start: 20160605, end: 20160605
  2. GLUCOSE [Concomitant]
     Active Substance: DEXTROSE
     Dosage: 5 PERCENTAGE
     Route: 041
  3. POTASSIUM CHLORIDE. [Concomitant]
     Active Substance: POTASSIUM CHLORIDE
     Indication: ELECTROLYTE SUBSTITUTION THERAPY
     Route: 041
     Dates: start: 20160605, end: 20160605
  4. GLUCOSE [Concomitant]
     Active Substance: DEXTROSE
     Dosage: AS SOLVENT
     Route: 041
     Dates: start: 20160605, end: 20160605
  5. ROCEPHIN [Suspect]
     Active Substance: CEFTRIAXONE SODIUM
     Indication: UPPER RESPIRATORY TRACT INFECTION
     Route: 041
     Dates: start: 20160605, end: 20160605
  6. SODIUM CHLORIDE. [Concomitant]
     Active Substance: SODIUM CHLORIDE
     Indication: ELECTROLYTE SUBSTITUTION THERAPY
     Dosage: CONCENTRATED
     Route: 041
     Dates: start: 20160605, end: 20160605

REACTIONS (5)
  - Livedo reticularis [Recovered/Resolved]
  - Hypertonia [Recovered/Resolved]
  - Pyrexia [Recovered/Resolved]
  - Pallor [Recovered/Resolved]
  - Feeling cold [Recovered/Resolved]

NARRATIVE: CASE EVENT DATE: 20160605
